FAERS Safety Report 7755748-8 (Version None)
Quarter: 2011Q3

REPORT INFORMATION
  Report Type: 
  Country: None (occurrence: None)
  Receive Date: 20110914
  Receipt Date: 20110831
  Transmission Date: 20111222
  Serious: Yes (Other)
  Sender: FDA-Public Use
  Company Number: 2010MA002923

PATIENT
  Sex: Female

DRUGS (20)
  1. BENADRYL [Concomitant]
  2. NIZATIDINE [Concomitant]
  3. LORATADINE [Concomitant]
  4. ZOLPIDEM [Suspect]
  5. CISAPRIDE [Concomitant]
  6. ESTROPIPATE [Concomitant]
  7. ALBUTEROL [Concomitant]
  8. SENNAGEN [Concomitant]
  9. METOCLOPRAMIDE [Suspect]
     Indication: GASTRIC DISORDER
     Dosage: 10 MG;QID;PO
     Route: 048
     Dates: start: 19990714, end: 19991111
  10. LISINOPRIL [Concomitant]
  11. LORAZEPAM [Concomitant]
  12. CLARITHORMYCIN [Concomitant]
  13. GUAIFENESIN [Concomitant]
  14. METFORMIN HCL [Concomitant]
  15. FURROSEMIDE [Concomitant]
  16. BUSPIRONE HCL [Concomitant]
  17. ALPRAZOLAM [Concomitant]
  18. FAMOTIDINE [Concomitant]
  19. INSULIN [Concomitant]
  20. SOMA [Concomitant]

REACTIONS (19)
  - EXTRAPYRAMIDAL DISORDER [None]
  - EMOTIONAL DISORDER [None]
  - PAIN [None]
  - DIABETES MELLITUS [None]
  - DEPRESSION [None]
  - MOVEMENT DISORDER [None]
  - DYSKINESIA [None]
  - ECONOMIC PROBLEM [None]
  - TREMOR [None]
  - IRRITABLE BOWEL SYNDROME [None]
  - ASTHENIA [None]
  - EMOTIONAL DISTRESS [None]
  - AMNESIA [None]
  - CHEST PAIN [None]
  - DYSPNOEA [None]
  - CHOREA [None]
  - TARDIVE DYSKINESIA [None]
  - HEMIPARESIS [None]
  - CARDIAC DISORDER [None]
